FAERS Safety Report 25655379 (Version 1)
Quarter: 2025Q3

REPORT INFORMATION
  Report Type: Report from Study
  Country: EG (occurrence: EG)
  Receive Date: 20250807
  Receipt Date: 20250807
  Transmission Date: 20251020
  Serious: Yes (Other)
  Sender: ALEXION PHARMACEUTICALS
  Company Number: EG-AstraZeneca-CH-00711027A

PATIENT
  Age: 41 Year
  Sex: Female

DRUGS (3)
  1. LYNPARZA [Suspect]
     Active Substance: OLAPARIB
     Indication: Breast cancer metastatic
     Dosage: 300 MILLIGRAM, Q12H
     Dates: start: 20240524
  2. LYNPARZA [Suspect]
     Active Substance: OLAPARIB
     Dosage: 300 MILLIGRAM, QD
  3. ANASTROZOLE [Suspect]
     Active Substance: ANASTROZOLE
     Route: 065

REACTIONS (1)
  - Facial discomfort [Unknown]

NARRATIVE: CASE EVENT DATE: 20240917
